FAERS Safety Report 7106651-8 (Version None)
Quarter: 2010Q4

REPORT INFORMATION
  Report Type: 
  Country: None (occurrence: None)
  Receive Date: 20101116
  Receipt Date: 20101026
  Transmission Date: 20110411
  Serious: No
  Sender: FDA-Public Use
  Company Number: US-ABBOTT-10P-163-0660808-00

PATIENT
  Sex: Male
  Weight: 79.45 kg

DRUGS (5)
  1. SIMCOR [Suspect]
     Indication: HYPERLIPIDAEMIA
     Dates: start: 20080601, end: 20090601
  2. SIMCOR [Suspect]
     Dates: start: 20090601, end: 20090701
  3. SIMCOR [Suspect]
     Dates: start: 20090701
  4. SYNTHROID [Concomitant]
     Indication: PRODUCT USED FOR UNKNOWN INDICATION
  5. ASPIRIN [Concomitant]
     Indication: PRODUCT USED FOR UNKNOWN INDICATION

REACTIONS (4)
  - APHASIA [None]
  - COMMUNICATION DISORDER [None]
  - FEELING ABNORMAL [None]
  - FLUSHING [None]
